FAERS Safety Report 8343989-0 (Version None)
Quarter: 2012Q2

REPORT INFORMATION
  Report Type: 
  Country: None (occurrence: None)
  Receive Date: 20120508
  Receipt Date: 20120430
  Transmission Date: 20120825
  Serious: No
  Sender: FDA-Public Use
  Company Number: US-PFIZER INC-2012081963

PATIENT
  Sex: Male

DRUGS (2)
  1. AZITHROMYCIN [Suspect]
     Dosage: 250 MG, DAILY
     Route: 048
     Dates: start: 20120101
  2. AZITHROMYCIN [Suspect]
     Indication: PYREXIA
     Dosage: 500 MG, ONCE
     Route: 048
     Dates: start: 20120330

REACTIONS (1)
  - DRUG INEFFECTIVE [None]
